FAERS Safety Report 7994019-1 (Version None)
Quarter: 2011Q4

REPORT INFORMATION
  Report Type: 
  Country: None (occurrence: None)
  Receive Date: 20111215
  Receipt Date: 20111201
  Transmission Date: 20120403
  Serious: Yes (Death, Hospitalization)
  Sender: FDA-Public Use
  Company Number: JP-2011-12088

PATIENT
  Age: 63 Year
  Sex: Female

DRUGS (12)
  1. COTRIM [Suspect]
     Dosage: ORAL
     Route: 048
     Dates: end: 20111119
  2. HANP (CARPERITIDE) INJECTION [Concomitant]
  3. ALDACTONE [Concomitant]
  4. PREDNISOLONE [Concomitant]
  5. WARFARIN (WARFARIN POTASSIUM) [Concomitant]
  6. ROHYPNOL (FLUNITRAZEPAM) TABLET [Concomitant]
  7. DIART (AZOSEMIDE) TABLET [Concomitant]
  8. SAMSCA [Suspect]
     Indication: CARDIAC FAILURE CHRONIC
     Dosage: 3.75 MG MILLIGRAM(S), QOD, ORAL, 3.75 MG MILLIGRAM(S),  DAILY DOSE, ORAL
     Route: 048
     Dates: start: 20111110, end: 20111110
  9. SAMSCA [Suspect]
     Indication: CARDIAC FAILURE CHRONIC
     Dosage: 3.75 MG MILLIGRAM(S), QOD, ORAL, 3.75 MG MILLIGRAM(S),  DAILY DOSE, ORAL
     Route: 048
     Dates: start: 20111114, end: 20111114
  10. LASIX (FUROSEMIDEL [Concomitant]
  11. ALENDRONATE SODIUM [Suspect]
     Dosage: ORAL
     Route: 048
     Dates: end: 20111119
  12. ACARDI (PIMOBENDAN) CAPSULE [Concomitant]

REACTIONS (2)
  - VENTRICULAR FIBRILLATION [None]
  - WHITE BLOOD CELL COUNT DECREASED [None]
